FAERS Safety Report 16648169 (Version 1)
Quarter: 2019Q3

REPORT INFORMATION
  Report Type: Spontaneous
  Country: JP (occurrence: JP)
  Receive Date: 20190730
  Receipt Date: 20190730
  Transmission Date: 20191004
  Serious: Yes (Hospitalization, Other)
  Sender: FDA-Public Use
  Company Number: PHHY2019JP176366

PATIENT
  Age: 86 Year
  Sex: Female

DRUGS (1)
  1. RIVASTACH [Suspect]
     Active Substance: RIVASTIGMINE
     Indication: PRODUCT USED FOR UNKNOWN INDICATION
     Dosage: 9.5 MG, QD, PATCH 10 (CM2) (18 MG RIVASTIGMINE BASE)
     Route: 062

REACTIONS (2)
  - Disseminated intravascular coagulation [Unknown]
  - Renal disorder [Unknown]
